FAERS Safety Report 5478302-X (Version None)
Quarter: 2007Q4

REPORT INFORMATION
  Report Type: 
  Country: None (occurrence: None)
  Receive Date: 20071005
  Receipt Date: 20071001
  Transmission Date: 20080405
  Serious: Yes (Other)
  Sender: FDA-Public Use
  Company Number: US-JNJFOC-20071000419

PATIENT
  Age: 62 Year
  Sex: Female
  Weight: 56.7 kg

DRUGS (8)
  1. EXTRA STRENGTH TYLENOL [Suspect]
  2. EXTRA STRENGTH TYLENOL [Suspect]
     Indication: ARTHRALGIA
  3. ZOLOFT [Concomitant]
     Indication: ANTIDEPRESSANT THERAPY
  4. SKELAXIN [Concomitant]
     Indication: ARTHRITIS
  5. LYRICA [Concomitant]
     Indication: ANALGESIA
  6. VALIUM [Concomitant]
     Indication: ANXIETY
  7. ZANTAC [Concomitant]
     Indication: DYSPEPSIA
  8. CLARITIN [Concomitant]
     Indication: MULTIPLE ALLERGIES

REACTIONS (2)
  - BLINDNESS [None]
  - HYPERSENSITIVITY [None]
